FAERS Safety Report 6631593-1 (Version None)
Quarter: 2010Q1

REPORT INFORMATION
  Report Type: 
  Country: None (occurrence: None)
  Receive Date: 20100312
  Receipt Date: 20100309
  Transmission Date: 20100710
  Serious: Yes (Death, Other)
  Sender: FDA-Public Use
  Company Number: PHEH2009US14710

PATIENT
  Sex: Female
  Weight: 46.032 kg

DRUGS (16)
  1. EXJADE [Suspect]
     Indication: ANAEMIA OF CHRONIC DISEASE
     Dosage: 1000 MG, QD
     Route: 048
     Dates: start: 20090831, end: 20090930
  2. EXJADE [Suspect]
     Indication: IRON OVERLOAD
  3. PRILOSEC [Concomitant]
     Dosage: 20 MG DAILY
  4. LORTAB [Concomitant]
     Dosage: 10/500 MG Q 4H PRN
  5. EVISTA [Concomitant]
     Dosage: 60 MG DAILY
  6. PREDNISONE [Concomitant]
  7. TOPROL-XL [Concomitant]
  8. MIACALCIN [Concomitant]
  9. FOLIC ACID [Concomitant]
     Dosage: 1 MG DAILY
  10. LASIX [Concomitant]
     Dosage: 20 MG DAILY
  11. BACTRIM DS [Concomitant]
     Dosage: 1 TABLET BID IN EVENING
  12. XYZAL [Concomitant]
     Dosage: 5 MG DAILY IN EVENING
  13. SINGULAIR [Concomitant]
     Dosage: 10 MG DAILY
  14. LOTREL [Concomitant]
     Dosage: 10-20 MG DAILY
  15. DURAGESIC-100 [Concomitant]
     Route: 062
  16. OXYCODONE [Concomitant]
     Dosage: 5 MG, Q4H

REACTIONS (32)
  - ADENOCARCINOMA [None]
  - ANAEMIA [None]
  - AORTIC STENOSIS [None]
  - ARTERIOSCLEROSIS CORONARY ARTERY [None]
  - BODY HEIGHT DECREASED [None]
  - CARDIOMEGALY [None]
  - CHOLELITHIASIS [None]
  - COLON CANCER [None]
  - DIARRHOEA [None]
  - DYSPNOEA [None]
  - FATIGUE [None]
  - HEPATIC MASS [None]
  - HEPATIC NEOPLASM MALIGNANT [None]
  - HIATUS HERNIA [None]
  - HYSTERECTOMY [None]
  - LYMPH NODE CALCIFICATION [None]
  - METASTASES TO LUNG [None]
  - OSTEOARTHRITIS [None]
  - OSTEOPENIA [None]
  - OSTEOPOROSIS [None]
  - PANCREATIC ATROPHY [None]
  - PATHOLOGICAL FRACTURE [None]
  - RECTAL CANCER METASTATIC [None]
  - RENAL CANCER METASTATIC [None]
  - RENAL CYST [None]
  - RENAL MASS [None]
  - SERUM FERRITIN INCREASED [None]
  - SPINAL COLUMN STENOSIS [None]
  - SPINAL COMPRESSION FRACTURE [None]
  - SPINAL OSTEOARTHRITIS [None]
  - THYROID NEOPLASM [None]
  - WEIGHT DECREASED [None]
